FAERS Safety Report 21715882 (Version 2)
Quarter: 2023Q1

REPORT INFORMATION
  Report Type: Report from Study
  Country: US (occurrence: US)
  Receive Date: 20221212
  Receipt Date: 20230117
  Transmission Date: 20230417
  Serious: Yes (Death, Hospitalization, Other)
  Sender: FDA-Public Use
  Company Number: US-009507513-2212USA003636

PATIENT
  Sex: Female
  Weight: 84.354 kg

DRUGS (1)
  1. KEYTRUDA [Suspect]
     Active Substance: PEMBROLIZUMAB
     Indication: Neuroendocrine carcinoma of the skin
     Dosage: 200 MILLIGRAM
     Route: 042
     Dates: start: 20220817

REACTIONS (5)
  - Death [Fatal]
  - Adverse event [Unknown]
  - Epistaxis [Unknown]
  - Thrombocytopenia [Unknown]
  - Illness [Unknown]

NARRATIVE: CASE EVENT DATE: 20220101
